FAERS Safety Report 13012964 (Version 1)
Quarter: 2016Q4

REPORT INFORMATION
  Report Type: Spontaneous
  Country: US (occurrence: US)
  Receive Date: 20161209
  Receipt Date: 20161209
  Transmission Date: 20170207
  Serious: No
  Sender: FDA-Public Use
  Company Number: US-PFIZER INC-2016565697

PATIENT
  Age: 72 Year
  Sex: Female

DRUGS (5)
  1. MSM [Concomitant]
     Active Substance: DIMETHYL SULFONE
     Indication: ARTHROPATHY
     Dosage: UNK
  2. MSM [Concomitant]
     Active Substance: DIMETHYL SULFONE
     Indication: MUSCULOSKELETAL STIFFNESS
  3. ADVIL [Suspect]
     Active Substance: IBUPROFEN
     Indication: JOINT STIFFNESS
     Dosage: 200 MG, 1X/DAY
     Route: 048
     Dates: start: 20161201
  4. ADVIL [Suspect]
     Active Substance: IBUPROFEN
     Indication: ARTHRALGIA
  5. MSM [Concomitant]
     Active Substance: DIMETHYL SULFONE
     Indication: PROPHYLAXIS

REACTIONS (1)
  - Drug ineffective [Not Recovered/Not Resolved]

NARRATIVE: CASE EVENT DATE: 20161202
